FAERS Safety Report 7078871-2 (Version None)
Quarter: 2010Q4

REPORT INFORMATION
  Report Type: 
  Country: None (occurrence: None)
  Receive Date: 20101021
  Receipt Date: 20101005
  Transmission Date: 20110411
  Serious: Yes (Hospitalization)
  Sender: FDA-Public Use
  Company Number: 020359

PATIENT
  Sex: Male

DRUGS (9)
  1. CERTOLIZUMAB PEGOL (CERTOLIZUMAB PEGOL) [Suspect]
     Indication: RHEUMATOID ARTHRITIS
     Dosage: (200 MG 1X/2 WEEKS SUBCUTANEOUS)
     Route: 058
     Dates: start: 20091217, end: 20100924
  2. PREDNISOLONE [Suspect]
     Indication: RHEUMATOID ARTHRITIS
     Dosage: (5 MG ORAL)
     Route: 048
     Dates: start: 20090611
  3. METHOTREXATE [Suspect]
     Indication: RHEUMATOID ARTHRITIS
     Dosage: (8 MG ORAL)
     Route: 048
     Dates: start: 20090808, end: 20100926
  4. REBAMIPIDE [Concomitant]
  5. LOXOPROFEN SODIUM [Concomitant]
  6. UNKNOWN [Concomitant]
  7. TRANEXAMIC ACID [Concomitant]
  8. DIMEMORFAN PHOSPHATE [Concomitant]
  9. ACETAMINOPHEN [Concomitant]

REACTIONS (1)
  - PNEUMONIA [None]
